FAERS Safety Report 5308474-9 (Version None)
Quarter: 2007Q2

REPORT INFORMATION
  Report Type: 
  Country: None (occurrence: None)
  Receive Date: 20070426
  Receipt Date: 20070416
  Transmission Date: 20071010
  Serious: Yes (Hospitalization)
  Sender: FDA-Public Use
  Company Number: HQWYE622518APR07

PATIENT
  Age: 37 Year
  Sex: Female

DRUGS (1)
  1. LEVONORGESTREL AND ETHINYL ESTRADIOL [Suspect]
     Indication: MENSTRUATION IRREGULAR
     Dosage: UNKNOWN
     Route: 048
     Dates: start: 20020401

REACTIONS (1)
  - VISUAL FIELD DEFECT [None]
